FAERS Safety Report 7153239-9 (Version None)
Quarter: 2010Q4

REPORT INFORMATION
  Report Type: 
  Country: None (occurrence: None)
  Receive Date: 20101213
  Receipt Date: 20101206
  Transmission Date: 20110411
  Serious: Yes (Other)
  Sender: FDA-Public Use
  Company Number: FR-ASTRAZENECA-2010SE58066

PATIENT
  Age: 64 Year
  Sex: Female

DRUGS (3)
  1. MOPRAL [Suspect]
     Route: 048
     Dates: end: 20101108
  2. FELDENE [Suspect]
     Route: 048
     Dates: start: 20101018, end: 20101108
  3. PLAQUENIL [Suspect]
     Route: 048
     Dates: start: 20101025, end: 20101108

REACTIONS (1)
  - DERMATITIS EXFOLIATIVE [None]
